FAERS Safety Report 7927313-0 (Version None)
Quarter: 2011Q4

REPORT INFORMATION
  Report Type: 
  Country: None (occurrence: None)
  Receive Date: 20111118
  Receipt Date: 20111109
  Transmission Date: 20120403
  Serious: Yes (Hospitalization)
  Sender: FDA-Public Use
  Company Number: PHHY2011FI099328

PATIENT
  Sex: Male

DRUGS (13)
  1. CLOZAPINE [Suspect]
     Indication: SCHIZOPHRENIA
     Dates: start: 20110912
  2. DIAPAM [Concomitant]
     Dosage: 10 MG X3
  3. BENZODIAZEPINES [Concomitant]
  4. ATIVAN [Concomitant]
     Route: 042
  5. CLOZAPINE [Suspect]
     Dosage: 200 MG, UNK
     Dates: start: 20111021, end: 20111021
  6. TRUXALETTEN [Concomitant]
     Indication: ANXIETY
     Dosage: 10 MG, IN THE EVENINGS
     Dates: start: 20111014, end: 20111021
  7. TRUXALETTEN [Concomitant]
     Indication: INSOMNIA
  8. ATARAX [Concomitant]
     Dates: end: 20111021
  9. LORAZEPAM [Concomitant]
     Indication: ANXIETY
     Dosage: 0.5 MG, THREE TIMES PER DAY (AT 8, 12 AND 16)
     Dates: start: 20111020, end: 20111021
  10. MELATONIN [Concomitant]
     Indication: INSOMNIA
     Dosage: 4 MG, PER DAY
     Dates: start: 20110222, end: 20111028
  11. TENOX (TEMAZEPAM) [Concomitant]
     Indication: INSOMNIA
  12. LORAZEPAM [Concomitant]
     Indication: INSOMNIA
  13. TENOX (TEMAZEPAM) [Concomitant]
     Indication: ANXIETY
     Dosage: 20 MG, IN THE EVENING
     Dates: start: 20111019, end: 20111021

REACTIONS (20)
  - PRODUCTIVE COUGH [None]
  - MUSCLE SPASMS [None]
  - VOMITING [None]
  - GENERAL PHYSICAL HEALTH DETERIORATION [None]
  - AGGRESSION [None]
  - MUSCLE SPASTICITY [None]
  - CERUMEN IMPACTION [None]
  - NEUROLEPTIC MALIGNANT SYNDROME [None]
  - ABNORMAL BEHAVIOUR [None]
  - HEART RATE INCREASED [None]
  - FEELING COLD [None]
  - OLIGURIA [None]
  - BOWEL MOVEMENT IRREGULARITY [None]
  - DELUSION [None]
  - GAIT DISTURBANCE [None]
  - CATATONIA [None]
  - HALLUCINATION [None]
  - NERVOUSNESS [None]
  - COLD SWEAT [None]
  - JOINT STIFFNESS [None]
